FAERS Safety Report 4855873-5 (Version None)
Quarter: 2005Q4

REPORT INFORMATION
  Report Type: 
  Country: None (occurrence: None)
  Receive Date: 20051216
  Receipt Date: 20050916
  Transmission Date: 20060501
  Serious: Yes (Hospitalization)
  Sender: FDA-Public Use
  Company Number: US-MERCK-0509USA02653

PATIENT
  Age: 46 Year
  Sex: Male
  Weight: 110 kg

DRUGS (10)
  1. VIOXX [Suspect]
     Indication: BACK PAIN
     Route: 048
     Dates: start: 20020703, end: 20030501
  2. VIOXX [Suspect]
     Route: 048
     Dates: start: 20000110
  3. VIOXX [Suspect]
     Indication: ARTHRALGIA
     Route: 048
     Dates: start: 20020703, end: 20030501
  4. VIOXX [Suspect]
     Route: 048
     Dates: start: 20000110
  5. ELAVIL [Concomitant]
     Indication: PAIN
     Route: 065
  6. LIPITOR [Concomitant]
     Indication: BLOOD CHOLESTEROL INCREASED
     Route: 065
  7. MEPERGAN FORTIS [Concomitant]
     Indication: PAIN
     Route: 065
  8. NORVASC [Concomitant]
     Indication: CARDIAC DISORDER
     Route: 065
  9. DIOVAN [Concomitant]
     Indication: HYPERTENSION
     Route: 065
  10. ZANAFLEX [Concomitant]
     Indication: PAIN IN EXTREMITY
     Route: 065

REACTIONS (20)
  - BACK PAIN [None]
  - BENIGN PROSTATIC HYPERPLASIA [None]
  - BLOOD CHOLESTEROL INCREASED [None]
  - BLOOD TRIGLYCERIDES INCREASED [None]
  - DEEP VEIN THROMBOSIS [None]
  - DEPRESSION [None]
  - DERMATITIS [None]
  - DRUG DEPENDENCE [None]
  - HYPERCHOLESTEROLAEMIA [None]
  - HYPERTENSION [None]
  - HYPOTHYROIDISM [None]
  - LETHARGY [None]
  - MUSCLE SPASMS [None]
  - OSTEOARTHRITIS [None]
  - OVERDOSE [None]
  - RASH [None]
  - RHINITIS [None]
  - SPINAL COLUMN STENOSIS [None]
  - TREMOR [None]
  - UPPER RESPIRATORY TRACT INFECTION [None]
